FAERS Safety Report 13068551 (Version 2)
Quarter: 2017Q1

REPORT INFORMATION
  Report Type: Report from Study
  Country: CZ (occurrence: CZ)
  Receive Date: 20161228
  Receipt Date: 20170105
  Transmission Date: 20170428
  Serious: Yes (Hospitalization)
  Sender: FDA-Public Use
  Company Number: CZ-PFIZER INC-2016595871

PATIENT
  Age: 68 Year
  Sex: Female
  Weight: 85 kg

DRUGS (9)
  1. ARAVA [Suspect]
     Active Substance: LEFLUNOMIDE
     Dosage: UNK
     Dates: end: 20160310
  2. EUPHYLLIN /00003701/ [Concomitant]
     Dosage: UNK
     Dates: start: 201408
  3. FURIX [Concomitant]
     Active Substance: FUROSEMIDE
     Dosage: UNK
     Dates: start: 20150331
  4. MEDROL [Suspect]
     Active Substance: METHYLPREDNISOLONE
     Indication: RHEUMATOID ARTHRITIS
     Dosage: 8 MG, 1X/DAY
     Route: 048
     Dates: start: 201601, end: 20160310
  5. MEDROL [Suspect]
     Active Substance: METHYLPREDNISOLONE
     Dosage: 8 MG, 1X/DAY
     Route: 048
  6. ATROVENT [Concomitant]
     Active Substance: IPRATROPIUM BROMIDE
     Dosage: UNK
     Dates: start: 201410
  7. MEDROL [Suspect]
     Active Substance: METHYLPREDNISOLONE
     Dosage: 16 MG, 1X/DAY
     Route: 048
     Dates: start: 20160715
  8. MILURIT [Concomitant]
     Active Substance: ALLOPURINOL
     Dosage: UNK
     Dates: start: 200509
  9. SULFASALAZINE DELAYED-RELEASE [Concomitant]
     Active Substance: SULFASALAZINE
     Dosage: UNK
     Dates: start: 2014

REACTIONS (1)
  - Endocarditis [Not Recovered/Not Resolved]

NARRATIVE: CASE EVENT DATE: 20160908
